FAERS Safety Report 23881166 (Version 1)
Quarter: 2024Q2

REPORT INFORMATION
  Report Type: Spontaneous
  Country: US (occurrence: US)
  Receive Date: 20240521
  Receipt Date: 20240521
  Transmission Date: 20240716
  Serious: Yes (Other)
  Sender: FDA-Public Use
  Company Number: US-SUN PHARMACEUTICAL INDUSTRIES LTD-2024R1-447053

PATIENT
  Age: 37 Year
  Sex: Female

DRUGS (3)
  1. ACARBOSE [Suspect]
     Active Substance: ACARBOSE
     Indication: Hypoglycaemia
     Dosage: UNK
     Route: 065
  2. OCTREOTIDE [Suspect]
     Active Substance: OCTREOTIDE\OCTREOTIDE ACETATE
     Indication: Hypoglycaemia
     Dosage: UNK
     Route: 065
  3. DIAZOXIDE [Suspect]
     Active Substance: DIAZOXIDE
     Indication: Hypoglycaemia
     Dosage: UNK
     Route: 065

REACTIONS (4)
  - Drug ineffective [Unknown]
  - Vomiting [Unknown]
  - Nausea [Unknown]
  - Exposure during pregnancy [Unknown]
